FAERS Safety Report 13940056 (Version 1)
Quarter: 2017Q3

REPORT INFORMATION
  Report Type: Spontaneous
  Country: US (occurrence: US)
  Receive Date: 20170906
  Receipt Date: 20170906
  Transmission Date: 20171127
  Serious: Yes (Life-Threatening, Other)
  Sender: FDA-Public Use
  Company Number: US-AUROBINDO-AUR-APL-2017-39750

PATIENT
  Age: 40 Year
  Sex: Male

DRUGS (2)
  1. CLINDAMYCIN. [Suspect]
     Active Substance: CLINDAMYCIN
     Indication: TOXIC SHOCK SYNDROME STREPTOCOCCAL
     Route: 065
  2. IMMUNE GLOBULIN (IVIG) [Suspect]
     Active Substance: HUMAN IMMUNOGLOBULIN G
     Indication: TOXIC SHOCK SYNDROME STREPTOCOCCAL
     Route: 042

REACTIONS (14)
  - Pallor [None]
  - Multiple organ dysfunction syndrome [None]
  - Disseminated intravascular coagulation [None]
  - Hypoxia [None]
  - Toxic shock syndrome [None]
  - Drug ineffective [Not Recovered/Not Resolved]
  - Blood pressure increased [None]
  - Cyanosis [None]
  - Renal tubular necrosis [None]
  - Lethargy [None]
  - Tachycardia [None]
  - Hypoglycaemia [None]
  - Diffuse alveolar damage [None]
  - Hepatic necrosis [None]
